FAERS Safety Report 6156733-2 (Version None)
Quarter: 2009Q2

REPORT INFORMATION
  Report Type: 
  Country: None (occurrence: None)
  Receive Date: 20090413
  Receipt Date: 20090226
  Transmission Date: 20091009
  Serious: No
  Sender: FDA-Public Use
  Company Number: 2009BM000046

PATIENT
  Age: 53 Year
  Sex: Male
  Weight: 61.2356 kg

DRUGS (3)
  1. KUVAN [Suspect]
     Indication: PHENYLKETONURIA
     Dosage: 1200 MG;QD;PO
     Route: 048
     Dates: start: 20081115, end: 20081222
  2. THIORIDAZINE HCL [Concomitant]
  3. VALPROIC ACID [Concomitant]

REACTIONS (1)
  - AGGRESSION [None]
